FAERS Safety Report 21211655 (Version 1)
Quarter: 2022Q3

REPORT INFORMATION
  Report Type: Spontaneous
  Country: US (occurrence: None)
  Receive Date: 20220812
  Receipt Date: 20220812
  Transmission Date: 20221027
  Serious: Yes (Life-Threatening)
  Sender: FDA-Public Use
  Company Number: None

PATIENT
  Age: 70 Year
  Sex: Female
  Weight: 118.84 kg

DRUGS (1)
  1. HEPARIN SODIUM, BOVINE [Suspect]
     Active Substance: HEPARIN SODIUM, BOVINE
     Indication: Prophylaxis
     Route: 058
     Dates: start: 20220530, end: 20220613

REACTIONS (1)
  - Thrombocytopenia [None]

NARRATIVE: CASE EVENT DATE: 20220614
